FAERS Safety Report 6148255-X (Version None)
Quarter: 2009Q2

REPORT INFORMATION
  Report Type: 
  Country: None (occurrence: None)
  Receive Date: 20090403
  Receipt Date: 20090120
  Transmission Date: 20091009
  Serious: Yes (Other)
  Sender: FDA-Public Use
  Company Number: 20090013

PATIENT
  Age: 29 Year
  Sex: Female
  Weight: 44 kg

DRUGS (1)
  1. DEXFERRUM [Suspect]
     Indication: DRUG USE FOR UNKNOWN INDICATION
     Dosage: 1 ML INTRAMUSCULAR
     Route: 030
     Dates: start: 20090107, end: 20090107

REACTIONS (1)
  - SKIN DISCOLOURATION [None]
